FAERS Safety Report 9636246 (Version 2)
Quarter: 2013Q4

REPORT INFORMATION
  Report Type: Spontaneous
  Country: IT (occurrence: IT)
  Receive Date: 20131021
  Receipt Date: 20131206
  Transmission Date: 20140711
  Serious: Yes (Other)
  Sender: FDA-Public Use
  Company Number: IT-PFIZER INC-2013298495

PATIENT
  Age: 63 Year
  Sex: Male

DRUGS (2)
  1. ZOLOFT [Suspect]
     Dosage: 50 MG, DAILY
     Route: 048
     Dates: start: 20130821, end: 20130828
  2. SERENASE [Suspect]
     Dosage: 5 GTT, 1X/DAY
     Route: 048
     Dates: start: 20130821, end: 20130828

REACTIONS (1)
  - Delirium [Recovering/Resolving]
